FAERS Safety Report 10951220 (Version 8)
Quarter: 2015Q3

REPORT INFORMATION
  Report Type: Spontaneous
  Country: DE (occurrence: DE)
  Receive Date: 20150324
  Receipt Date: 20150819
  Transmission Date: 20151125
  Serious: Yes (Hospitalization)
  Sender: FDA-Public Use
  Company Number: DE-AMGEN-DEUSP2015026363

PATIENT
  Sex: Female

DRUGS (26)
  1. PREDNISONE. [Suspect]
     Active Substance: PREDNISONE
     Indication: B-CELL LYMPHOMA
     Dosage: 100 MG, 7 DAYS PREPHASE FOR 7 DAYS
     Route: 048
     Dates: start: 20150109, end: 20150115
  2. VINCRISTINE [Suspect]
     Active Substance: VINCRISTINE
     Indication: B-CELL LYMPHOMA
     Dosage: 3.48 MG, (1 IN 2)
     Route: 042
     Dates: start: 20150218
  3. HYDROCHLOROTHIAZIDE. [Concomitant]
     Active Substance: HYDROCHLOROTHIAZIDE
     Indication: POLYURIA
     Dosage: 25 MG, 1 IN 1 D
     Route: 048
  4. RITUXIMAB [Suspect]
     Active Substance: RITUXIMAB
     Indication: B-CELL LYMPHOMA
     Dosage: SINGLE DOSE, 652.5 MG
     Route: 042
     Dates: start: 20150122, end: 20150122
  5. BISOPROLOL [Concomitant]
     Active Substance: BISOPROLOL
     Indication: HYPERTENSION
     Dosage: 2.5 MG, 1 IN 1 D
     Route: 048
  6. PANTOPRAZOLE SODIUM. [Concomitant]
     Active Substance: PANTOPRAZOLE SODIUM
     Indication: PROPHYLAXIS
     Dosage: 80 MG, 1 IN 1 D
     Route: 048
  7. METAMIZOLE SODIUM [Concomitant]
     Active Substance: METAMIZOLE SODIUM
     Indication: PAIN
     Dosage: 400 MG, AS NEEDED
     Route: 048
  8. METHOTREXATE DISODIUM [Suspect]
     Active Substance: METHOTREXATE SODIUM
     Indication: B-CELL LYMPHOMA
     Dosage: SINGLE DOSE, 2610 MG
     Route: 042
     Dates: start: 20150123, end: 20150123
  9. RIVAROXABAN [Concomitant]
     Active Substance: RIVAROXABAN
     Indication: PROPHYLAXIS
     Dosage: 20 MG, 1 IN 1 D
     Route: 048
  10. RAMIPRIL. [Concomitant]
     Active Substance: RAMIPRIL
     Indication: HYPERTENSION
     Dosage: 2.5 MG, 1 IN 1 D
     Route: 048
  11. RITUXIMAB [Suspect]
     Active Substance: RITUXIMAB
     Dosage: 652.5 MG, 1 IN 2 WK
     Route: 042
     Dates: start: 20150123
  12. OFLOXACIN. [Concomitant]
     Active Substance: OFLOXACIN
     Indication: HERPES VIRUS INFECTION
     Dosage: UNK UNK, 1 IN 1 D
     Route: 058
     Dates: start: 201505
  13. METHOTREXATE DISODIUM [Suspect]
     Active Substance: METHOTREXATE SODIUM
     Dosage: MAINTENANCE DOSE 2610 MG, 2 IN 8 D
     Route: 042
     Dates: start: 20150126, end: 20150202
  14. CALCIUM FOLINATE [Suspect]
     Active Substance: LEUCOVORIN CALCIUM
     Indication: B-CELL LYMPHOMA
     Dosage: 78 MG, (2 IN 7 D)
     Route: 042
     Dates: start: 20150127, end: 20150202
  15. MORPHINE SULFATE. [Concomitant]
     Active Substance: MORPHINE SULFATE
     Indication: PAIN
     Dosage: 30 MG, 1 IN 1 D
     Route: 048
  16. PREGABALIN. [Concomitant]
     Active Substance: PREGABALIN
     Indication: PAIN
     Dosage: 150 MG, 1 IN 1 D
     Route: 048
  17. PEGFILGRASTIM [Suspect]
     Active Substance: PEGFILGRASTIM
     Indication: B-CELL LYMPHOMA
     Dosage: 6 MG, (1 IN 2 WK)
     Route: 058
     Dates: start: 20150221, end: 20150307
  18. MACROGOL W/POTASSIUM CHLORIDE/SODIU/06401201/ [Concomitant]
     Indication: CONSTIPATION
     Dosage: 13.125 G, 1 TIMES A DAY
     Route: 048
  19. PREDNISONE. [Suspect]
     Active Substance: PREDNISONE
     Dosage: 100 MG, 5 DAYS OF CYCLES
     Route: 048
     Dates: start: 20150109, end: 20150308
  20. CYCLOPHOSPHAMIDE. [Suspect]
     Active Substance: CYCLOPHOSPHAMIDE
     Indication: B-CELL LYMPHOMA
     Dosage: 1305 MG, (1 IN 2 WK)
     Route: 042
     Dates: start: 20150218
  21. DOXORUBICINE [Suspect]
     Active Substance: DOXORUBICIN
     Indication: B-CELL LYMPHOMA
     Dosage: 87 MG, (1 IN 2)
     Route: 042
     Dates: start: 20150218
  22. VITAMIN D                          /00107901/ [Concomitant]
     Active Substance: ERGOCALCIFEROL
     Indication: VITAMIN D DEFICIENCY
     Dosage: 20000 IU, 1 TIMES A DAY
     Route: 048
  23. ACYCLOVIR                          /00587301/ [Concomitant]
     Active Substance: ACYCLOVIR
     Indication: HERPES VIRUS INFECTION
     Dosage: 200 MG, 1 IN 1 D
     Route: 048
     Dates: start: 201505
  24. CHOLECALCIFEROL [Concomitant]
     Active Substance: CHOLECALCIFEROL
     Dosage: 2000 IU, 1 IN 1 D
     Dates: start: 201502
  25. AMLODIPINE [Concomitant]
     Active Substance: AMLODIPINE BESYLATE
     Indication: HYPERTENSION
     Dosage: 7.5 MG, 1 IN 1 D
     Route: 048
  26. DEXAMETHASONE. [Concomitant]
     Active Substance: DEXAMETHASONE
     Indication: BONE NEOPLASM
     Dosage: 24 MG, 1 IN 1 D
     Route: 048

REACTIONS (18)
  - Cough [Unknown]
  - Thrombocytopenia [Recovered/Resolved]
  - Prerenal failure [Unknown]
  - Pyrexia [Recovered/Resolved]
  - Urosepsis [Recovered/Resolved]
  - Urinary tract infection [Recovered/Resolved]
  - Oedema peripheral [Unknown]
  - Pyelonephritis [Recovered/Resolved]
  - Confusional state [Unknown]
  - Mucosal inflammation [Recovered/Resolved]
  - Hypokalaemia [Recovered/Resolved]
  - General physical health deterioration [Unknown]
  - Fatigue [Unknown]
  - Fall [Unknown]
  - Anaemia [Unknown]
  - Leukopenia [Recovered/Resolved]
  - General physical health deterioration [Unknown]
  - Dyspnoea exertional [Unknown]

NARRATIVE: CASE EVENT DATE: 20150206
